FAERS Safety Report 6739998-5 (Version None)
Quarter: 2010Q2

REPORT INFORMATION
  Report Type: 
  Country: None (occurrence: None)
  Receive Date: 20100525
  Receipt Date: 20100520
  Transmission Date: 20101027
  Serious: Yes (Other)
  Sender: FDA-Public Use
  Company Number: GB-BRISTOL-MYERS SQUIBB COMPANY-15115405

PATIENT
  Age: 5 Decade
  Sex: Male

DRUGS (3)
  1. REYATAZ [Suspect]
  2. TRUVADA [Suspect]
     Dosage: 1 DF = TENOFOVIR DISOPROXIL 245 MG/EMTRICITABINE 200 MG
  3. RITONAVIR [Suspect]

REACTIONS (1)
  - HEPATITIS ACUTE [None]
